FAERS Safety Report 8901834 (Version 4)
Quarter: 2014Q2

REPORT INFORMATION
  Report Type: Spontaneous
  Country: US (occurrence: None)
  Receive Date: 20121107
  Receipt Date: 20140422
  Transmission Date: 20141212
  Serious: Yes (Hospitalization)
  Sender: FDA-Public Use
  Company Number: US-JNJFOC-20121016535

PATIENT
  Age: 79 Year
  Sex: Male
  Weight: 78 kg

DRUGS (3)
  1. DECITABINE [Suspect]
     Indication: ACUTE MYELOID LEUKAEMIA
     Route: 042
     Dates: start: 20120609
  2. VELCADE [Suspect]
     Indication: ACUTE MYELOID LEUKAEMIA
     Route: 058
     Dates: start: 20120609
  3. NORVASC (AMLODIPINE BESILATE) [Concomitant]

REACTIONS (10)
  - Asthenia [None]
  - Fall [None]
  - Presyncope [None]
  - Orthostatic hypotension [None]
  - Failure to thrive [None]
  - Dehydration [None]
  - Urinary tract infection [None]
  - Anaemia [None]
  - Febrile neutropenia [None]
  - Enterocolitis infectious [None]
